FAERS Safety Report 7180740-4 (Version None)
Quarter: 2010Q4

REPORT INFORMATION
  Report Type: 
  Country: None (occurrence: None)
  Receive Date: 20101221
  Receipt Date: 20101221
  Transmission Date: 20110411
  Serious: Yes (Other)
  Sender: FDA-Public Use
  Company Number: CA-ABBOTT-10P-028-0692217-00

PATIENT
  Sex: Female
  Weight: 65.83 kg

DRUGS (4)
  1. HUMIRA [Suspect]
     Indication: RHEUMATOID ARTHRITIS
     Route: 058
     Dates: start: 20100201
  2. HUMIRA [Suspect]
     Dates: end: 20090801
  3. NAPROXEN [Concomitant]
     Indication: ARTHRITIS
     Dosage: 250 MG, PRN
     Route: 048
     Dates: start: 20060101
  4. WELLBUTRIN [Concomitant]
     Indication: EX-TOBACCO USER
     Route: 048
     Dates: start: 20101101

REACTIONS (5)
  - BLOODY DISCHARGE [None]
  - FISTULA [None]
  - PURULENT DISCHARGE [None]
  - WOUND DEHISCENCE [None]
  - WOUND DRAINAGE [None]
